FAERS Safety Report 15134441 (Version 1)
Quarter: 2018Q3

REPORT INFORMATION
  Report Type: Spontaneous
  Country: US (occurrence: US)
  Receive Date: 20180615
  Receipt Date: 20180615
  Transmission Date: 20181010
  Serious: No
  Sender: FDA-Public Use
  Company Number: None

PATIENT

DRUGS (2)
  1. LIQUID NITROGEN [Suspect]
     Active Substance: NITROGEN
  2. 5FU [Suspect]
     Active Substance: FLUOROURACIL

REACTIONS (4)
  - Scar [None]
  - Hypersensitivity [None]
  - Discomfort [None]
  - Drug intolerance [None]
